FAERS Safety Report 10021561 (Version 1)
Quarter: 2014Q1

REPORT INFORMATION
  Report Type: Spontaneous
  Country: US (occurrence: None)
  Receive Date: 20140318
  Receipt Date: 20140318
  Transmission Date: 20141002
  Serious: Yes (Hospitalization)
  Sender: FDA-Public Use
  Company Number: None

PATIENT
  Age: 48 Year
  Sex: Female
  Weight: 146.06 kg

DRUGS (14)
  1. VIVITROL [Suspect]
     Indication: ALCOHOLISM
     Route: 030
     Dates: start: 20140227
  2. SEROQUEL [Concomitant]
  3. CYMBALTA [Concomitant]
  4. WELLBUTRIN XL [Concomitant]
  5. CAMPRAL [Concomitant]
  6. ENALAPRIL MALEATE [Concomitant]
  7. HCTZ [Concomitant]
  8. METFORMIN [Concomitant]
  9. LANTUS [Concomitant]
  10. HUMALOG [Concomitant]
  11. AMLODIPINE [Concomitant]
  12. OMEPRAZOLE [Concomitant]
  13. NAPROXEN [Concomitant]
  14. MELATONIN [Concomitant]

REACTIONS (2)
  - Mood altered [None]
  - Intentional self-injury [None]
